FAERS Safety Report 21909305 (Version 1)
Quarter: 2023Q1

REPORT INFORMATION
  Report Type: Spontaneous
  Country: US (occurrence: US)
  Receive Date: 20230125
  Receipt Date: 20230125
  Transmission Date: 20230417
  Serious: No
  Sender: FDA-Public Use
  Company Number: US-FERAPHARMA-2022-US-020275

PATIENT
  Age: 13 Year
  Sex: Female
  Weight: 47.6 kg

DRUGS (14)
  1. KEFLEX [Suspect]
     Active Substance: CEPHALEXIN
     Indication: Ear infection
     Route: 065
     Dates: start: 202204
  2. ALBUTEROL [Concomitant]
     Active Substance: ALBUTEROL
     Route: 065
  3. VITAMIN D3 [Concomitant]
     Active Substance: CHOLECALCIFEROL
     Route: 065
  4. VITAMINS [Concomitant]
     Active Substance: VITAMINS
     Route: 065
  5. FLONASE [Concomitant]
     Active Substance: FLUTICASONE PROPIONATE
     Route: 065
  6. ASPIRIN [Concomitant]
     Active Substance: ASPIRIN
     Route: 065
  7. REMODULIN [Suspect]
     Active Substance: TREPROSTINIL
     Dosage: 0.0334 ?G/KG, CONTINUING/UNK, CONTINUING (INFUSION RATE OF 0.044 ML/HR)/ UNK, CONTINUING (INFUSION R
     Dates: start: 20211221
  8. CLINDAMYCIN [Suspect]
     Active Substance: CLINDAMYCIN
     Route: 065
     Dates: start: 20220408
  9. DOXYCYCLINE [Suspect]
     Active Substance: DOXYCYCLINE
     Route: 065
  10. AMBRISENTAN [Concomitant]
     Active Substance: AMBRISENTAN
     Route: 065
  11. TADALAFIL [Concomitant]
     Active Substance: TADALAFIL
  12. LASIX [Concomitant]
     Active Substance: FUROSEMIDE
     Route: 065
  13. SINGULAIR [Concomitant]
     Active Substance: MONTELUKAST SODIUM
     Route: 065
  14. MELATONIN [Concomitant]
     Active Substance: MELATONIN
     Route: 065

REACTIONS (1)
  - Rash [Unknown]

NARRATIVE: CASE EVENT DATE: 20220417
